FAERS Safety Report 6391021-0 (Version None)
Quarter: 2009Q4

REPORT INFORMATION
  Report Type: 
  Country: None (occurrence: None)
  Receive Date: 20091007
  Receipt Date: 20090929
  Transmission Date: 20100525
  Serious: Yes (Hospitalization, Other)
  Sender: FDA-Public Use
  Company Number: US-BIOGENIDEC-2009BI017667

PATIENT
  Age: 67 Year
  Sex: Male

DRUGS (2)
  1. AVONEX [Suspect]
     Indication: MULTIPLE SCLEROSIS
     Route: 030
     Dates: start: 20010322, end: 20050110
  2. AVONEX [Suspect]
     Route: 030
     Dates: start: 20060428

REACTIONS (4)
  - COLOSTOMY [None]
  - POSTOPERATIVE FEVER [None]
  - WOUND [None]
  - WOUND INFECTION [None]
